FAERS Safety Report 6270499-7 (Version None)
Quarter: 2009Q3

REPORT INFORMATION
  Report Type: 
  Country: None (occurrence: None)
  Receive Date: 20090716
  Receipt Date: 20090708
  Transmission Date: 20100115
  Serious: Yes (Other)
  Sender: FDA-Public Use
  Company Number: US-AVENTIS-200915270US

PATIENT
  Sex: Female
  Weight: 72.57 kg

DRUGS (20)
  1. LANTUS [Suspect]
     Indication: BLOOD GLUCOSE ABNORMAL
     Dosage: DOSE: 18 TO 20
     Route: 058
     Dates: start: 20050101, end: 20090301
  2. LANTUS [Suspect]
     Dosage: DOSE: 4 TO 6
     Route: 058
     Dates: start: 20090301
  3. COUMADIN [Suspect]
     Dates: start: 20090201
  4. NOVOLOG [Suspect]
     Dosage: DOSE: 8 TO 10
  5. EVISTA [Concomitant]
  6. LANOXIN [Concomitant]
  7. LIPITOR [Concomitant]
  8. CENTRUM SILVER                     /01292501/ [Concomitant]
     Dosage: DOSE: UNK
  9. SYNTHROID [Concomitant]
     Dosage: DOSE QUANTITY: 0.75
  10. ACCUPRIL [Concomitant]
  11. BENADRYL [Concomitant]
     Dosage: DOSE: UNK
  12. COREG [Concomitant]
  13. SPIRONOLACTONE [Concomitant]
  14. CALCIUM CITRATE [Concomitant]
     Dosage: DOSE: UNK
  15. PEPCID [Concomitant]
  16. LORTAB [Concomitant]
     Dosage: DOSE: 5/500
  17. MINITRAN                           /00003201/ [Concomitant]
     Dosage: DOSE: 0.2 MG/HR
  18. VIT D [Concomitant]
  19. FISH OIL [Concomitant]
  20. NUTRITIONAL SUPPLEMENT [Concomitant]
     Dosage: DOSE: 2 SCOOPS

REACTIONS (6)
  - BLOOD GLUCOSE DECREASED [None]
  - DRUG INTERACTION [None]
  - FALL [None]
  - HYPERHIDROSIS [None]
  - HYPOGLYCAEMIC UNCONSCIOUSNESS [None]
  - WRIST FRACTURE [None]
